FAERS Safety Report 8428648-8 (Version None)
Quarter: 2012Q2

REPORT INFORMATION
  Report Type: 
  Country: None (occurrence: None)
  Receive Date: 20120612
  Receipt Date: 20120606
  Transmission Date: 20120825
  Serious: Yes (Hospitalization, Other)
  Sender: FDA-Public Use
  Company Number: US-AMGEN-USASP2011041535

PATIENT
  Age: 58 Year
  Sex: Female

DRUGS (8)
  1. VYTORIN [Concomitant]
     Dosage: UNK
  2. METHOTREXATE [Concomitant]
     Dosage: 1 MG, QWK
  3. BENICAR [Concomitant]
     Dosage: UNK
  4. LIPITOR [Concomitant]
     Dosage: UNK
  5. ENBREL [Suspect]
     Indication: ANKYLOSING SPONDYLITIS
     Dosage: 50 MG, QWK
     Dates: start: 20060101, end: 20110101
  6. FOLIC ACID [Concomitant]
     Dosage: UNK
  7. PROTONIX [Concomitant]
     Dosage: UNK
  8. VOLTAREN [Concomitant]
     Dosage: UNK

REACTIONS (1)
  - BREAST CANCER [None]
